FAERS Safety Report 8590355-9 (Version None)
Quarter: 2012Q3

REPORT INFORMATION
  Report Type: 
  Country: None (occurrence: None)
  Receive Date: 20120813
  Receipt Date: 20120808
  Transmission Date: 20120928
  Serious: Yes (Other)
  Sender: FDA-Public Use
  Company Number: JP-PFIZER INC-2012193555

PATIENT
  Age: 74 Year
  Sex: Female

DRUGS (3)
  1. LANSOPRAZOLE [Concomitant]
     Dosage: UNK
     Dates: start: 20120516
  2. CELEBREX [Suspect]
     Indication: BACK PAIN
     Dosage: 200 MG DAILY
     Route: 048
     Dates: start: 20120516
  3. FORTEO [Concomitant]
     Dosage: UNK
     Dates: start: 20120106

REACTIONS (1)
  - BLEEDING TIME PROLONGED [None]
